FAERS Safety Report 4688253-6 (Version None)
Quarter: 2005Q2

REPORT INFORMATION
  Report Type: 
  Country: None (occurrence: None)
  Receive Date: 20050610
  Receipt Date: 20040721
  Transmission Date: 20051028
  Serious: Yes (Disabling)
  Sender: FDA-Public Use
  Company Number: GB-MERCK-0407GBR00213

PATIENT
  Age: 53 Year
  Sex: Male
  Weight: 81 kg

DRUGS (3)
  1. ZETIA [Suspect]
     Indication: HYPERCHOLESTEROLAEMIA
     Route: 048
     Dates: start: 20030701, end: 20040721
  2. ZOCOR [Suspect]
     Indication: HYPERCHOLESTEROLAEMIA
     Route: 048
     Dates: start: 20020101, end: 20040724
  3. RANITIDINE [Concomitant]
     Indication: ULCER
     Route: 048
     Dates: start: 20020101

REACTIONS (3)
  - HIGH DENSITY LIPOPROTEIN INCREASED [None]
  - MEAN CELL VOLUME INCREASED [None]
  - TINNITUS [None]
